FAERS Safety Report 13130939 (Version 2)
Quarter: 2017Q1

REPORT INFORMATION
  Report Type: Spontaneous
  Country: US (occurrence: US)
  Receive Date: 20170119
  Receipt Date: 20170123
  Transmission Date: 20170428
  Serious: No
  Sender: FDA-Public Use
  Company Number: US-JNJFOC-20170115930

PATIENT
  Age: 76 Year
  Sex: Female

DRUGS (10)
  1. STELARA [Suspect]
     Active Substance: USTEKINUMAB
     Indication: PSORIASIS
     Dosage: FOR 4 YEARS
     Route: 058
  2. METHOTREXATE. [Suspect]
     Active Substance: METHOTREXATE
     Indication: PSORIASIS
     Dosage: 54,323 (ISENTIFIED AS WEST WARD)
     Route: 048
     Dates: start: 20160729
  3. METHOTREXATE. [Suspect]
     Active Substance: METHOTREXATE
     Indication: PSORIATIC ARTHROPATHY
     Dosage: 54,323 (ISENTIFIED AS WEST WARD)
     Route: 048
     Dates: start: 20160729
  4. FOLIC ACID. [Concomitant]
     Active Substance: FOLIC ACID
     Route: 065
  5. METHOTREXATE. [Suspect]
     Active Substance: METHOTREXATE
     Indication: DRY SKIN
     Dosage: 54,323 (ISENTIFIED AS WEST WARD)
     Route: 048
     Dates: start: 20160729
  6. STELARA [Suspect]
     Active Substance: USTEKINUMAB
     Indication: DRY SKIN
     Dosage: FOR 4 YEARS
     Route: 058
  7. METHOTREXATE. [Suspect]
     Active Substance: METHOTREXATE
     Indication: PSORIATIC ARTHROPATHY
     Route: 048
     Dates: start: 20161030
  8. STELARA [Suspect]
     Active Substance: USTEKINUMAB
     Indication: PSORIATIC ARTHROPATHY
     Dosage: FOR 4 YEARS
     Route: 058
  9. METHOTREXATE. [Suspect]
     Active Substance: METHOTREXATE
     Indication: PSORIASIS
     Route: 048
     Dates: start: 20161030
  10. METHOTREXATE. [Suspect]
     Active Substance: METHOTREXATE
     Indication: DRY SKIN
     Route: 048
     Dates: start: 20161030

REACTIONS (1)
  - Alopecia [Not Recovered/Not Resolved]
